FAERS Safety Report 9753830 (Version 1)
Quarter: 2013Q4

REPORT INFORMATION
  Report Type: Spontaneous
  Country: US (occurrence: US)
  Receive Date: 20131213
  Receipt Date: 20131213
  Transmission Date: 20140711
  Serious: No
  Sender: FDA-Public Use
  Company Number: US-GILEAD-2010-0027422

PATIENT
  Sex: Female

DRUGS (13)
  1. LETAIRIS [Suspect]
     Indication: PULMONARY ARTERIAL HYPERTENSION
     Route: 048
     Dates: start: 20100209
  2. DIOVAN [Concomitant]
  3. CARDIZEM CD [Concomitant]
  4. METOPROLOL [Concomitant]
  5. DIGOXIN [Concomitant]
  6. TRICOR [Concomitant]
  7. LIPITOR [Concomitant]
  8. FUROSEMIDE [Concomitant]
  9. WARFARIN [Concomitant]
  10. ACTONEL [Concomitant]
  11. POT CL [Concomitant]
  12. PROTONIX [Concomitant]
  13. CALCIUM [Concomitant]

REACTIONS (2)
  - Oxygen saturation decreased [Unknown]
  - Fluid retention [Unknown]
